FAERS Safety Report 20769632 (Version 2)
Quarter: 2023Q1

REPORT INFORMATION
  Report Type: Spontaneous
  Country: US (occurrence: US)
  Receive Date: 20220429
  Receipt Date: 20230217
  Transmission Date: 20230418
  Serious: Yes (Other)
  Sender: FDA-Public Use
  Company Number: SR22-0076739

PATIENT
  Age: 70 Year
  Sex: Female

DRUGS (9)
  1. DIAZEPAM [Suspect]
     Active Substance: DIAZEPAM
     Indication: Anxiety
  2. MYCOPHENOLATE MOFETIL [Suspect]
     Active Substance: MYCOPHENOLATE MOFETIL
     Indication: Product used for unknown indication
  3. ASCORBIC ACID [Concomitant]
     Active Substance: ASCORBIC ACID
     Indication: Product used for unknown indication
     Dates: start: 20170313
  4. covid-19 (moderna) [Concomitant]
     Indication: Product used for unknown indication
     Dates: start: 20211229
  5. covid-19 (moderna) [Concomitant]
     Dates: start: 20210315
  6. covid-19 (moderna) [Concomitant]
     Dates: start: 20210215
  7. influenza (ID) [Concomitant]
     Indication: Product used for unknown indication
     Dates: start: 20190923
  8. influenza, unspecified [Concomitant]
     Indication: Product used for unknown indication
     Dates: start: 20140901
  9. pneumococcal unspecified [Concomitant]
     Indication: Product used for unknown indication
     Dates: start: 20100901

REACTIONS (7)
  - Systemic lupus erythematosus [Unknown]
  - Hypercoagulation [Unknown]
  - Precerebral artery thrombosis [Not Recovered/Not Resolved]
  - Toxicity to various agents [Unknown]
  - Hypoaesthesia [Unknown]
  - Magnetic resonance imaging abnormal [Unknown]
  - Off label use [Unknown]

NARRATIVE: CASE EVENT DATE: 20200709
